FAERS Safety Report 5134596-1 (Version None)
Quarter: 2006Q4

REPORT INFORMATION
  Report Type: 
  Country: None (occurrence: None)
  Receive Date: 20061025
  Receipt Date: 20060918
  Transmission Date: 20070319
  Serious: Yes (Hospitalization)
  Sender: FDA-Public Use
  Company Number: US-GLAXOSMITHKLINE-A0620521A

PATIENT
  Age: 46 Year
  Sex: Female

DRUGS (7)
  1. IMITREX [Suspect]
     Indication: MIGRAINE
     Dosage: 100MG VARIABLE DOSE
     Route: 048
  2. MAXALT [Concomitant]
  3. SYNTHROID [Concomitant]
  4. PREDNISONE TAB [Concomitant]
  5. ADVAIR HFA [Concomitant]
  6. UNKNOWN MEDICATION [Concomitant]
  7. METHADONE [Concomitant]

REACTIONS (8)
  - AMNESIA [None]
  - CEREBROVASCULAR ACCIDENT [None]
  - DRUG INEFFECTIVE [None]
  - EYE DISORDER [None]
  - EYE SWELLING [None]
  - MUSCULOSKELETAL STIFFNESS [None]
  - READING DISORDER [None]
  - ROAD TRAFFIC ACCIDENT [None]
